FAERS Safety Report 14459616 (Version 1)
Quarter: 2018Q1

REPORT INFORMATION
  Report Type: Spontaneous
  Country: US (occurrence: US)
  Receive Date: 20180130
  Receipt Date: 20180130
  Transmission Date: 20180509
  Serious: Yes (Other)
  Sender: FDA-Public Use
  Company Number: PHHY2018US009275

PATIENT
  Age: 78 Year
  Sex: Male

DRUGS (1)
  1. VALACICLOVIR [Suspect]
     Active Substance: VALACYCLOVIR HYDROCHLORIDE
     Indication: HERPES ZOSTER
     Route: 065

REACTIONS (7)
  - Metabolic acidosis [Unknown]
  - Acute kidney injury [Recovering/Resolving]
  - Overdose [Unknown]
  - Encephalopathy [Unknown]
  - Mental status changes [Recovering/Resolving]
  - Agitation [Unknown]
  - Poisoning [Unknown]
